FAERS Safety Report 23973458 (Version 1)
Quarter: 2024Q2

REPORT INFORMATION
  Report Type: Spontaneous
  Country: US (occurrence: None)
  Receive Date: 20240613
  Receipt Date: 20240613
  Transmission Date: 20240716
  Serious: No
  Sender: FDA-Public Use
  Company Number: US-MDD US Operations-MDD202311-004349

PATIENT
  Age: 75 Year
  Sex: Male

DRUGS (17)
  1. APOKYN [Suspect]
     Active Substance: APOMORPHINE HYDROCHLORIDE
     Indication: Parkinson^s disease
     Dates: start: 20231102
  2. APOKYN [Suspect]
     Active Substance: APOMORPHINE HYDROCHLORIDE
     Indication: Dystonia
     Dosage: TITRATE BY 0.1 ML EVERY FEW DAYS (MAX OF 0.6ML)
     Route: 058
  3. APOKYN [Suspect]
     Active Substance: APOMORPHINE HYDROCHLORIDE
     Dosage: 0.1ML UP TO 0.6ML, 10MG/ML 3ML CARTRIDGE 1 EA CART
     Route: 058
     Dates: start: 202310
  4. MIDODRINE HYDROCHLORIDE [Concomitant]
     Active Substance: MIDODRINE HYDROCHLORIDE
     Dosage: NOT PROVIDED
  5. MIDODRINE HYDROCHLORIDE [Concomitant]
     Active Substance: MIDODRINE HYDROCHLORIDE
     Dosage: NOT PROVIDED
  6. MILK OF MAGNESIA [Concomitant]
     Active Substance: MAGNESIUM HYDROXIDE
     Dosage: NOT PROVIDED
  7. CALCIUM [Concomitant]
     Active Substance: CALCIUM
     Dosage: NOT PROVIDED
  8. CALCIUM [Concomitant]
     Active Substance: CALCIUM
     Dosage: NOT PROVIDED
  9. D3-200 [Concomitant]
     Dosage: NOT PROVIDED
  10. D3-200 [Concomitant]
     Dosage: NOT PROVIDED
  11. SINEMET [Concomitant]
     Active Substance: CARBIDOPA\LEVODOPA
     Dosage: NOT PROVIDED
  12. SINEMET [Concomitant]
     Active Substance: CARBIDOPA\LEVODOPA
     Dosage: EACH DF CONTAIN 25MG-100MG
  13. METHYLCOBALAMIN [Concomitant]
     Active Substance: METHYLCOBALAMIN
     Dosage: NOT PROVIDED
  14. STELARA [Concomitant]
     Active Substance: USTEKINUMAB
     Dosage: NOT PROVIDED
  15. STELARA [Concomitant]
     Active Substance: USTEKINUMAB
     Dosage: 90MG/ML
  16. IRON [Concomitant]
     Active Substance: IRON
     Dosage: NOT PROVIDED
  17. IRON [Concomitant]
     Active Substance: IRON
     Dosage: 325(65) MG

REACTIONS (5)
  - Hypotension [Recovered/Resolved]
  - Fall [Unknown]
  - Constipation [Unknown]
  - Hypotension [Unknown]
  - Product use in unapproved indication [Unknown]

NARRATIVE: CASE EVENT DATE: 20231106
